FAERS Safety Report 24143992 (Version 3)
Quarter: 2024Q3

REPORT INFORMATION
  Report Type: Spontaneous
  Country: US (occurrence: US)
  Receive Date: 20240727
  Receipt Date: 20240827
  Transmission Date: 20241017
  Serious: No
  Sender: ROCHE
  Company Number: US-ROCHE-10000035135

PATIENT
  Age: 72 Year
  Sex: Female

DRUGS (2)
  1. ACTEMRA ACTPEN [Suspect]
     Active Substance: TOCILIZUMAB
     Indication: Rheumatoid arthritis
     Route: 058
  2. ACTEMRA ACTPEN [Suspect]
     Active Substance: TOCILIZUMAB
     Dosage: STRENGTH:162MG/0.9ML.
     Route: 058

REACTIONS (4)
  - COVID-19 [Unknown]
  - Drug ineffective [Unknown]
  - Swelling [Unknown]
  - Pain [Unknown]
